FAERS Safety Report 9333829 (Version 1)
Quarter: 2013Q2

REPORT INFORMATION
  Report Type: Spontaneous
  Country: US (occurrence: US)
  Receive Date: 20130606
  Receipt Date: 20130606
  Transmission Date: 20140414
  Serious: Yes (Hospitalization)
  Sender: FDA-Public Use
  Company Number: US-GILEAD-2013-0075266

PATIENT
  Sex: Female

DRUGS (24)
  1. LETAIRIS [Suspect]
     Indication: PULMONARY HYPERTENSION
     Dates: start: 20121217
  2. LETAIRIS [Suspect]
     Indication: MITRAL VALVE STENOSIS
  3. ASPIRIN [Concomitant]
     Dosage: 81 MG, QD
  4. PLAVIX [Concomitant]
     Dosage: 75 MG, QD
  5. RESTASIS [Concomitant]
     Dosage: UNK, BID
  6. JANUMET [Concomitant]
     Dosage: 1050 DF, BID
  7. CILOSTAZOL [Concomitant]
     Dosage: 100 MG, QD
  8. BYETTA [Concomitant]
     Dosage: 250 ?G, BID
  9. POTASSIUM CHLORIDE [Concomitant]
     Dosage: 30 MEQ, QD
  10. DIOVAN [Concomitant]
     Dosage: 40 MG, BID
  11. ALENDRONATE [Concomitant]
     Dosage: 70 MG, Q1WK
  12. LIPITOR [Concomitant]
     Dosage: 40 MG, Q1WK
  13. SYMBICORT [Concomitant]
     Dosage: 2 DF, BID
  14. FUROSEMIDE [Concomitant]
     Dosage: 20 MG, QD
  15. GEMFIBROZIL [Concomitant]
     Dosage: 600 MG, QD
  16. SYNTHROID [Concomitant]
     Dosage: 112 ?G, QD
  17. LORAZEPAM [Concomitant]
     Dosage: 2 MG, QD
  18. SINGULAIR [Concomitant]
     Dosage: 10 MG, QD
  19. VESICARE [Concomitant]
     Dosage: 10 MG, QD
  20. SPIRIVA [Concomitant]
     Dosage: 1 DF, QD
     Route: 055
  21. EVISTA [Concomitant]
     Dosage: 60 MG, QD
  22. DEXILANT [Concomitant]
     Dosage: UNK, PRN
  23. CELEBREX [Concomitant]
     Dosage: UNK, PRN
  24. MECLIZINE                          /00072801/ [Concomitant]
     Dosage: UNK, PRN

REACTIONS (3)
  - Respiratory failure [Unknown]
  - Pneumonia [Unknown]
  - Mitral valve stenosis [Unknown]
